FAERS Safety Report 17026842 (Version 1)
Quarter: 2019Q4

REPORT INFORMATION
  Report Type: Spontaneous
  Country: FR (occurrence: FR)
  Receive Date: 20191113
  Receipt Date: 20191113
  Transmission Date: 20200122
  Serious: Yes (Life-Threatening)
  Sender: FDA-Public Use
  Company Number: FR-MYLANLABS-2019M1107804

PATIENT
  Age: 69 Year
  Sex: Male
  Weight: 125 kg

DRUGS (2)
  1. PROPOFOL LIPURO [Suspect]
     Active Substance: PROPOFOL
     Indication: ANAESTHESIA
     Dosage: 1226 MILLIGRAM
     Route: 042
     Dates: start: 20180108, end: 20180108
  2. REMIFENTANIL MYLAN [Suspect]
     Active Substance: REMIFENTANIL
     Indication: ANAESTHESIA
     Dosage: UNK (410 GAMMA)
     Route: 042
     Dates: start: 20180108, end: 20180108

REACTIONS (2)
  - Shock [Recovered/Resolved]
  - Cyanosis [Recovered/Resolved]

NARRATIVE: CASE EVENT DATE: 20180108
